FAERS Safety Report 5505181-4 (Version None)
Quarter: 2007Q4

REPORT INFORMATION
  Report Type: 
  Country: None (occurrence: None)
  Receive Date: 20071102
  Receipt Date: 20071023
  Transmission Date: 20080405
  Serious: Yes (Hospitalization, Other)
  Sender: FDA-Public Use
  Company Number: FR-BRISTOL-MYERS SQUIBB COMPANY-13965421

PATIENT
  Age: 58 Year
  Sex: Male

DRUGS (3)
  1. IFOSFAMIDE [Suspect]
     Indication: SARCOMA
     Route: 042
     Dates: start: 20061121, end: 20070112
  2. UROMITEXAN [Suspect]
     Indication: SARCOMA
     Dosage: CYCLE1,2 AND 3:21-NOV-2006TO 24-NOV-2006,11-DEC-2006 TO 16- DEC-2006 AND 8-JAN-2007 TO L2-JAN-2007 .
     Dates: start: 20061121, end: 20070112
  3. MICARDIS [Suspect]
     Indication: HYPERTENSION
     Route: 048
     Dates: start: 20070601, end: 20070801

REACTIONS (6)
  - HYPERPARATHYROIDISM SECONDARY [None]
  - HYPERTENSION [None]
  - METABOLIC ACIDOSIS [None]
  - NORMOCHROMIC NORMOCYTIC ANAEMIA [None]
  - RENAL FAILURE [None]
  - TUBULOINTERSTITIAL NEPHRITIS [None]
